FAERS Safety Report 19196913 (Version 1)
Quarter: 2021Q2

REPORT INFORMATION
  Report Type: Spontaneous
  Country: CN (occurrence: CN)
  Receive Date: 20210429
  Receipt Date: 20210429
  Transmission Date: 20210717
  Serious: Yes (Other)
  Sender: FDA-Public Use
  Company Number: CN-BAYER-2021-132261

PATIENT
  Age: 46 Year
  Sex: Male

DRUGS (1)
  1. AVELOX [Suspect]
     Active Substance: MOXIFLOXACIN HYDROCHLORIDE
     Indication: CEREBROVASCULAR DISORDER
     Dosage: 0.4 G, QD
     Route: 041
     Dates: start: 20210404, end: 20210405

REACTIONS (9)
  - Peripheral swelling [None]
  - Skin warm [Recovering/Resolving]
  - Rash erythematous [Recovering/Resolving]
  - Injection site erythema [None]
  - Injection site swelling [None]
  - Injection site pain [None]
  - Pain in extremity [None]
  - Product use in unapproved indication [None]
  - Off label use [None]

NARRATIVE: CASE EVENT DATE: 20210404
